FAERS Safety Report 5081452-3 (Version None)
Quarter: 2006Q3

REPORT INFORMATION
  Report Type: 
  Country: None (occurrence: None)
  Receive Date: 20060810
  Receipt Date: 20060726
  Transmission Date: 20061208
  Serious: Yes (Hospitalization, Other)
  Sender: FDA-Public Use
  Company Number: CA200607005128

PATIENT
  Sex: Male

DRUGS (2)
  1. FORTEO [Suspect]
     Indication: OSTEOPOROSIS
     Dosage: 20 UG, DAILY (1/D), UNK
     Route: 065
     Dates: start: 20060215
  2. FORTEO PEN (FORTEO PEN) [Concomitant]

REACTIONS (4)
  - CONVULSION [None]
  - DRUG ADMINISTRATION ERROR [None]
  - DRUG DISPENSING ERROR [None]
  - LOSS OF CONSCIOUSNESS [None]
